FAERS Safety Report 12793687 (Version 1)
Quarter: 2016Q3

REPORT INFORMATION
  Report Type: Spontaneous
  Country: US (occurrence: US)
  Receive Date: 20160929
  Receipt Date: 20160929
  Transmission Date: 20161109
  Serious: No
  Sender: FDA-Public Use
  Company Number: US-JAZZ-2016-US-011718

PATIENT
  Sex: Female

DRUGS (30)
  1. CYCLAFEM [Concomitant]
  2. LIOTHYRONINE SODIUM. [Concomitant]
     Active Substance: LIOTHYRONINE SODIUM
  3. SINGULAIR [Concomitant]
     Active Substance: MONTELUKAST SODIUM
  4. BENADRYL ALLERGY [Concomitant]
     Active Substance: DIPHENHYDRAMINE HYDROCHLORIDE
  5. DHEA [Concomitant]
     Active Substance: PRASTERONE
  6. CHELATED MAGNESIUM [Concomitant]
  7. ATIVAN [Concomitant]
     Active Substance: LORAZEPAM
  8. XYREM [Suspect]
     Active Substance: SODIUM OXYBATE
     Dosage: 4.5 G, BID
     Route: 048
     Dates: start: 201510
  9. CLONAZEPAM. [Concomitant]
     Active Substance: CLONAZEPAM
  10. CALTRATE [Concomitant]
     Active Substance: CALCIUM CARBONATE
  11. VALACYCLOVIR HCL [Concomitant]
     Active Substance: VALACYCLOVIR HYDROCHLORIDE
  12. AMPHETAMINE SALTS [Concomitant]
     Active Substance: AMPHETAMINE ASPARTATE\AMPHETAMINE SULFATE\DEXTROAMPHETAMINE SACCHARATE\DEXTROAMPHETAMINE SULFATE
  13. HYDROCODONE/ACETAMINOPHEN [Concomitant]
     Active Substance: ACETAMINOPHEN\HYDROCODONE
  14. XANAX [Concomitant]
     Active Substance: ALPRAZOLAM
  15. CARVEDILOL. [Suspect]
     Active Substance: CARVEDILOL
     Indication: PRODUCT USED FOR UNKNOWN INDICATION
  16. TYLENOL EXTRA STRENGTH [Concomitant]
     Active Substance: ACETAMINOPHEN
  17. GABAPENTIN. [Concomitant]
     Active Substance: GABAPENTIN
  18. NALTREXONE [Concomitant]
     Active Substance: NALTREXONE
  19. ADDERALL [Concomitant]
     Active Substance: AMPHETAMINE ASPARTATE\AMPHETAMINE SULFATE\DEXTROAMPHETAMINE SACCHARATE\DEXTROAMPHETAMINE SULFATE
  20. XYREM [Suspect]
     Active Substance: SODIUM OXYBATE
     Indication: CATAPLEXY
     Dosage: DOSE ADJUSTMENTS
     Route: 048
     Dates: start: 201509, end: 201510
  21. MELATONIN [Concomitant]
     Active Substance: MELATONIN
  22. CELEBREX [Concomitant]
     Active Substance: CELECOXIB
  23. EFFEXOR XR [Concomitant]
     Active Substance: VENLAFAXINE HYDROCHLORIDE
  24. XYREM [Suspect]
     Active Substance: SODIUM OXYBATE
     Indication: NARCOLEPSY
     Dosage: 2.25 G, BID
     Route: 048
     Dates: start: 201509, end: 201509
  25. MAGNESIUM GLUCONATE [Suspect]
     Active Substance: MAGNESIUM GLUCONATE
     Indication: PRODUCT USED FOR UNKNOWN INDICATION
  26. CRESTOR [Concomitant]
     Active Substance: ROSUVASTATIN CALCIUM
  27. CLARITIN [Concomitant]
     Active Substance: LORATADINE
  28. VALIUM [Concomitant]
     Active Substance: DIAZEPAM
  29. PROAIR HFA [Concomitant]
     Active Substance: ALBUTEROL SULFATE
  30. VENLAFAXINE HCL [Concomitant]
     Active Substance: VENLAFAXINE HYDROCHLORIDE

REACTIONS (6)
  - Somnolence [Unknown]
  - Diarrhoea [Unknown]
  - Weight decreased [Unknown]
  - Blood cortisol increased [Not Recovered/Not Resolved]
  - Blood corticotrophin decreased [Not Recovered/Not Resolved]
  - Feeling abnormal [Not Recovered/Not Resolved]
